FAERS Safety Report 6421566-6 (Version None)
Quarter: 2009Q4

REPORT INFORMATION
  Report Type: 
  Country: None (occurrence: None)
  Receive Date: 20091029
  Receipt Date: 20091029
  Transmission Date: 20100525
  Serious: Yes (Life-Threatening, Other)
  Sender: FDA-Public Use
  Company Number: None

PATIENT
  Age: 42 Year
  Sex: Female
  Weight: 65.318 kg

DRUGS (6)
  1. REBIF [Suspect]
     Indication: MULTIPLE SCLEROSIS
     Dosage: 1 INJECTION 3 TIMES PER WEEK SUBCUTANE
     Route: 058
     Dates: start: 20090410, end: 20090723
  2. BUSPIRONE HCL [Concomitant]
  3. ZOLPIDEM [Concomitant]
  4. PROVIGIL [Concomitant]
  5. MECLIZINE [Concomitant]
  6. VITAMIN D [Concomitant]

REACTIONS (2)
  - INJECTION SITE CELLULITIS [None]
  - PAIN IN EXTREMITY [None]
